FAERS Safety Report 13802288 (Version 2)
Quarter: 2017Q3

REPORT INFORMATION
  Report Type: Report from Study
  Country: BR (occurrence: BR)
  Receive Date: 20170728
  Receipt Date: 20170824
  Transmission Date: 20171127
  Serious: Yes (Other)
  Sender: FDA-Public Use
  Company Number: PHHY2017BR110293

PATIENT
  Sex: Female
  Weight: 68 kg

DRUGS (1)
  1. ACLASTA [Suspect]
     Active Substance: ZOLEDRONIC ACID
     Indication: OSTEOPOROSIS
     Dosage: 1 DF (5 MG/100 ML), Q12MO
     Route: 042
     Dates: start: 201202

REACTIONS (4)
  - Malignant polyp [Unknown]
  - Nodule [Unknown]
  - Blood calcium decreased [Recovering/Resolving]
  - Coeliac disease [Unknown]

NARRATIVE: CASE EVENT DATE: 2012
